FAERS Safety Report 6947657-9 (Version None)
Quarter: 2010Q3

REPORT INFORMATION
  Report Type: 
  Country: None (occurrence: None)
  Receive Date: 20100828
  Receipt Date: 20090915
  Transmission Date: 20110219
  Serious: No
  Sender: FDA-Public Use
  Company Number: US-ABBOTT-09P-163-0597979-00

PATIENT
  Sex: Male

DRUGS (1)
  1. NIASPAN [Suspect]
     Indication: PRODUCT USED FOR UNKNOWN INDICATION
     Dosage: PATIENT STOPPED ON 12 SEP 2009 ON OWN
     Dates: start: 20090801, end: 20090912

REACTIONS (3)
  - ERYTHEMA [None]
  - INCORRECT DRUG ADMINISTRATION DURATION [None]
  - SKIN BURNING SENSATION [None]
